FAERS Safety Report 6274630-9 (Version None)
Quarter: 2009Q3

REPORT INFORMATION
  Report Type: 
  Country: None (occurrence: None)
  Receive Date: 20090717
  Receipt Date: 20090708
  Transmission Date: 20100115
  Serious: Yes (Other)
  Sender: FDA-Public Use
  Company Number: ADE#09-093

PATIENT
  Age: 67 Year
  Sex: Male
  Weight: 86.637 kg

DRUGS (3)
  1. PHENYTOIN SODIUM [Suspect]
     Indication: CONVULSION
     Dosage: 600 MG DAILY
  2. PROSTATE MEDICATION [Concomitant]
  3. EYE DROPS [Concomitant]

REACTIONS (6)
  - BALANCE DISORDER [None]
  - FALL [None]
  - MEMORY IMPAIRMENT [None]
  - MUSCULAR DYSTROPHY [None]
  - TREMOR [None]
  - VISION BLURRED [None]
